FAERS Safety Report 20886486 (Version 1)
Quarter: 2022Q2

REPORT INFORMATION
  Report Type: Spontaneous
  Country: HR (occurrence: HR)
  Receive Date: 20220527
  Receipt Date: 20220527
  Transmission Date: 20220720
  Serious: Yes (Other)
  Sender: FDA-Public Use
  Company Number: HR-BoehringerIngelheim-2022-BI-172037

PATIENT
  Sex: Male

DRUGS (1)
  1. DABIGATRAN [Suspect]
     Active Substance: DABIGATRAN
     Indication: Product used for unknown indication

REACTIONS (16)
  - Pericardial excision [Recovering/Resolving]
  - Dyspnoea [Recovering/Resolving]
  - Pleural effusion [Recovering/Resolving]
  - Pericardial effusion [Recovering/Resolving]
  - Bronchial disorder [Recovering/Resolving]
  - Purulent discharge [Recovering/Resolving]
  - Dilatation atrial [Recovering/Resolving]
  - Atrial thrombosis [Recovering/Resolving]
  - Atrial pressure increased [Recovering/Resolving]
  - Hypercoagulation [Unknown]
  - Iliac artery embolism [Recovering/Resolving]
  - Pericarditis constrictive [Recovering/Resolving]
  - Embolism [Recovering/Resolving]
  - Vena cava thrombosis [Recovering/Resolving]
  - Pericardial disease [Recovering/Resolving]
  - Haemodynamic instability [Recovering/Resolving]
